FAERS Safety Report 5149307-3 (Version None)
Quarter: 2006Q4

REPORT INFORMATION
  Report Type: 
  Country: None (occurrence: None)
  Receive Date: 20061113
  Receipt Date: 20061107
  Transmission Date: 20070319
  Serious: Yes (Other)
  Sender: FDA-Public Use
  Company Number: PHHC2-008

PATIENT
  Age: 74 Year
  Sex: Female

DRUGS (10)
  1. HYCAMTIN [Suspect]
     Indication: DRUG USE FOR UNKNOWN INDICATION
     Dosage: 1MGM2 PER DAY
     Dates: start: 20060403, end: 20060609
  2. CISPLATIN [Suspect]
  3. LAFUTIDINE [Concomitant]
  4. ONDANSETRON [Concomitant]
  5. METOCLOPRAMIDE [Concomitant]
  6. ALBUMIN TANNATE [Concomitant]
  7. MANNITOL [Concomitant]
  8. GRANISETRON HCL [Concomitant]
  9. FUROSEMIDE [Concomitant]
  10. NEUPOGEN [Concomitant]

REACTIONS (7)
  - ALANINE AMINOTRANSFERASE INCREASED [None]
  - ASPARTATE AMINOTRANSFERASE INCREASED [None]
  - BLOOD ALKALINE PHOSPHATASE INCREASED [None]
  - BLOOD PRESSURE DECREASED [None]
  - CONDITION AGGRAVATED [None]
  - DIARRHOEA [None]
  - WEIGHT DECREASED [None]
